FAERS Safety Report 22528791 (Version 1)
Quarter: 2023Q2

REPORT INFORMATION
  Report Type: Spontaneous
  Country: CN (occurrence: CN)
  Receive Date: 20230607
  Receipt Date: 20230607
  Transmission Date: 20230721
  Serious: Yes (Hospitalization, Other)
  Sender: FDA-Public Use
  Company Number: CN-SA-SAC20230606000433

PATIENT
  Age: 47 Year
  Sex: Male
  Weight: 98 kg

DRUGS (1)
  1. ENOXAPARIN SODIUM [Suspect]
     Active Substance: ENOXAPARIN SODIUM
     Indication: Pulmonary embolism
     Dosage: 90 MG, Q12H
     Route: 058
     Dates: start: 20230428, end: 20230506

REACTIONS (5)
  - Abdominal pain lower [Recovering/Resolving]
  - Abdominal mass [Recovering/Resolving]
  - Haematoma [Recovering/Resolving]
  - Muscle haemorrhage [Recovering/Resolving]
  - Haemorrhage [Recovering/Resolving]

NARRATIVE: CASE EVENT DATE: 20230506
